FAERS Safety Report 9613142 (Version 1)
Quarter: 2013Q3

REPORT INFORMATION
  Report Type: Spontaneous
  Country: US (occurrence: None)
  Receive Date: 20130919
  Receipt Date: 20130919
  Transmission Date: 20140515
  Serious: Yes (Other)
  Sender: FDA-Public Use
  Company Number: 2013037983

PATIENT
  Age: 18 Year
  Sex: Male
  Weight: 110 kg

DRUGS (12)
  1. PRIVIGEN [Suspect]
     Indication: IMMUNODEFICIENCY COMMON VARIABLE
     Dosage: 50G 1X/MONTH, 3 TO 4 HOURS INTRAVENOUS (50 G 1X/MONTH, 3 TO 4 HOURS INTRAVENOUS
     Route: 042
  2. AZATHIOPRINE (AZATHIOPRINE) [Concomitant]
  3. PENICILLIN (PENICILLIN NOS) [Concomitant]
  4. BACTRIM (BACTRIM) [Concomitant]
  5. DIPHENHYDRAMINE (DIPHENHYDRAMINE) [Concomitant]
  6. HEPARIN (HEPARIN) [Concomitant]
  7. NORMAL SALINE (SODIUM CHLORIDE) [Concomitant]
  8. EPI PEN (EPINEPHRINE) [Concomitant]
  9. RITUXAN (RITUXIMAB) [Concomitant]
  10. LMX (LIDOCAINE) [Concomitant]
  11. MULTIVITAMIN (DAILY MULTIVITAMIN) [Concomitant]
  12. ACETAMINOPHEN (PARACETAMOL) [Concomitant]

REACTIONS (1)
  - Meningitis viral [None]
